FAERS Safety Report 8838734 (Version 1)
Quarter: 2012Q4

REPORT INFORMATION
  Report Type: 
  Country: US (occurrence: US)
  Receive Date: 20121012
  Receipt Date: 20121012
  Transmission Date: 20130627
  Serious: No
  Sender: FDA-Public Use
  Company Number: US-009507513-1210USA004211

PATIENT
  Sex: Female
  Weight: 68.48 kg

DRUGS (4)
  1. NEXPLANON [Suspect]
     Indication: CONTRACEPTION
     Dosage: 1 DF, UNK
     Dates: start: 20120607
  2. LEVOTHYROXINE SODIUM [Concomitant]
  3. LUNESTA [Concomitant]
  4. ZOLOFT [Concomitant]

REACTIONS (1)
  - Macular degeneration [Unknown]
